FAERS Safety Report 16752882 (Version 1)
Quarter: 2019Q3

REPORT INFORMATION
  Report Type: Spontaneous
  Country: US (occurrence: US)
  Receive Date: 20190829
  Receipt Date: 20190829
  Transmission Date: 20191005
  Serious: No
  Sender: FDA-Public Use
  Company Number: US-JNJFOC-20190835387

PATIENT
  Age: 38 Year
  Sex: Male
  Weight: 95.34 kg

DRUGS (1)
  1. MENS ROGAINE EXTRA STRENGTH [Suspect]
     Active Substance: MINOXIDIL
     Indication: ALOPECIA
     Dosage: 1/2 CAPFUL TWICE A DAY
     Route: 061
     Dates: start: 20190822

REACTIONS (2)
  - Application site erythema [Recovering/Resolving]
  - Application site swelling [Recovering/Resolving]

NARRATIVE: CASE EVENT DATE: 20190824
